FAERS Safety Report 18680760 (Version 1)
Quarter: 2020Q4

REPORT INFORMATION
  Report Type: Spontaneous
  Country: CN (occurrence: CN)
  Receive Date: 20201229
  Receipt Date: 20201229
  Transmission Date: 20210114
  Serious: Yes (Hospitalization, Other)
  Sender: FDA-Public Use
  Company Number: CN-PFIZER INC-2020511126

PATIENT
  Age: 34 Year
  Sex: Male
  Weight: 65 kg

DRUGS (9)
  1. SOLU-MEDROL [Suspect]
     Active Substance: METHYLPREDNISOLONE SODIUM SUCCINATE
     Indication: DYSPEPSIA
     Dosage: 40 MG, 1X/DAY
     Route: 041
     Dates: start: 20201117, end: 20201121
  2. SODIUM CHLORIDE. [Suspect]
     Active Substance: SODIUM CHLORIDE
     Indication: DYSPEPSIA
     Dosage: 100 ML, 1X/DAY
     Route: 041
     Dates: start: 20201117, end: 20201121
  3. PREDNISONE ACETATE [Suspect]
     Active Substance: PREDNISONE ACETATE
     Indication: DYSPEPSIA
     Dosage: 5 MG, 3X/DAY
     Route: 048
     Dates: start: 20201117, end: 20201121
  4. EPINASTINE HYDROCHLORIDE. [Suspect]
     Active Substance: EPINASTINE HYDROCHLORIDE
     Indication: DYSPEPSIA
     Dosage: 10 MG, 1X/DAY
     Route: 048
     Dates: start: 20201117, end: 20201121
  5. DEXAMETHASONE SODIUM PHOSPHATE. [Suspect]
     Active Substance: DEXAMETHASONE SODIUM PHOSPHATE
     Indication: DYSPEPSIA
     Dosage: 1 ML, 1X/DAY
     Route: 041
     Dates: start: 20201117, end: 20201121
  6. DESLORATADINE CITRATE DISODIUM [Suspect]
     Active Substance: DESLORATADINE
     Indication: DYSPEPSIA
     Dosage: 8.8 MG, 1X/DAY
     Route: 048
     Dates: start: 20201117, end: 20201121
  7. YI LI AN [ILAPRAZOLE] [Suspect]
     Active Substance: ILAPRAZOLE
     Indication: DYSPEPSIA
     Dosage: 5 MG, 1X/DAY
     Route: 048
     Dates: start: 20201117, end: 20201121
  8. PHENERGAN [Suspect]
     Active Substance: PROMETHAZINE HYDROCHLORIDE
     Indication: DYSPEPSIA
     Dosage: 2 ML, 1X/DAY
     Route: 030
     Dates: start: 20201117, end: 20201121
  9. CALCIUM GLUCONATE. [Suspect]
     Active Substance: CALCIUM GLUCONATE
     Indication: DYSPEPSIA
     Dosage: 10 ML, 1X/DAY
     Route: 041
     Dates: start: 20201117, end: 20201121

REACTIONS (2)
  - Dyspepsia [Recovering/Resolving]
  - Condition aggravated [Recovering/Resolving]

NARRATIVE: CASE EVENT DATE: 20201121
